FAERS Safety Report 18856020 (Version 1)
Quarter: 2021Q1

REPORT INFORMATION
  Report Type: Spontaneous
  Country: GB (occurrence: GB)
  Receive Date: 20210206
  Receipt Date: 20210206
  Transmission Date: 20210420
  Serious: Yes (Life-Threatening, Hospitalization)
  Sender: FDA-Public Use
  Company Number: GB-ACCORD-216426

PATIENT
  Age: 55 Year
  Sex: Male

DRUGS (19)
  1. CLOZAPINE. [Suspect]
     Active Substance: CLOZAPINE
     Indication: SCHIZOPHRENIA
     Dosage: 50MG OM AND 75MG ON
     Route: 048
     Dates: end: 20201224
  2. CYCLIZINE [Concomitant]
     Active Substance: CYCLIZINE
     Dosage: UP TO EVERY 4 HOURS, WHEN NEEDED, MAX 3 TABLETS IN 24 HOURS
     Route: 048
  3. PROCYCLIDINE [Concomitant]
     Active Substance: PROCYCLIDINE
     Route: 048
  4. EMPAGLIFLOZIN [Concomitant]
     Active Substance: EMPAGLIFLOZIN
     Route: 048
  5. SALBUTAMOL [Concomitant]
     Active Substance: ALBUTEROL
     Indication: ASTHMA
     Dosage: ONE?TWO PUFFS UP TO EVERY HOUR, MAX 8 PUFFS IN 24 HOURS
     Route: 055
  6. LORAZEPAM. [Concomitant]
     Active Substance: LORAZEPAM
     Dosage: UP TO EVERY 2 HOURS, MAX 2MG IN 24 HOURS
     Route: 048
  7. PARACETAMOL [Concomitant]
     Active Substance: ACETAMINOPHEN
     Dosage: MAX 4G IN 24 HOURS AS NEEDED
     Route: 048
  8. LACTULOSE. [Concomitant]
     Active Substance: LACTULOSE
     Indication: CONSTIPATION
  9. MIRTAZAPINE. [Concomitant]
     Active Substance: MIRTAZAPINE
     Dosage: AT NIGHT
     Route: 048
  10. DIAZEPAM. [Concomitant]
     Active Substance: DIAZEPAM
     Route: 048
  11. OMEPRAZOLE. [Concomitant]
     Active Substance: OMEPRAZOLE
     Route: 048
  12. EVACAL D3 [Concomitant]
     Dosage: 1500MG/400UNIT IN THE MORNING
     Route: 048
  13. QUETIAPINE. [Suspect]
     Active Substance: QUETIAPINE
     Indication: SCHIZOPHRENIA
     Dosage: EVERY NIGHT
     Route: 048
  14. ATORVASTATIN [Concomitant]
     Active Substance: ATORVASTATIN
     Dosage: AT NIGHT
     Route: 048
  15. BUDESONIDE/FORMOTEROL [Concomitant]
     Active Substance: BUDESONIDE\FORMOTEROL
     Route: 055
  16. NICOTINE. [Concomitant]
     Active Substance: NICOTINE
     Dosage: ONE CARTRIDGE AS NEEDED
     Route: 055
  17. FOLIC ACID. [Concomitant]
     Active Substance: FOLIC ACID
     Dosage: AT NIGHT
     Route: 048
  18. MOVICOL [Concomitant]
     Active Substance: POLYETHYLENE GLYCOL 3350\POTASSIUM CHLORIDE\SODIUM BICARBONATE\SODIUM CHLORIDE
     Dosage: ONE SACHET
     Route: 048
  19. SODIUM PHOSPHATE [Concomitant]
     Active Substance: SODIUM PHOSPHATE
     Dosage: 118ML UP TO EVERY 12 HOURS
     Route: 054

REACTIONS (3)
  - Abdominal pain upper [Recovering/Resolving]
  - Hypertriglyceridaemia [Recovering/Resolving]
  - Pancreatitis acute [Recovering/Resolving]

NARRATIVE: CASE EVENT DATE: 20201222
